FAERS Safety Report 13757993 (Version 1)
Quarter: 2017Q3

REPORT INFORMATION
  Report Type: Spontaneous
  Country: US (occurrence: US)
  Receive Date: 20170717
  Receipt Date: 20170717
  Transmission Date: 20171127
  Serious: No
  Sender: FDA-Public Use
  Company Number: US-TEVA-755717ACC

PATIENT
  Sex: Male

DRUGS (2)
  1. ESOMEPRAZOLE MAGNESIUM DELAYED-RELEASE CAPSULES, USP [Suspect]
     Active Substance: ESOMEPRAZOLE MAGNESIUM
     Indication: OESOPHAGEAL DISORDER
     Dosage: 40 MILLIGRAM DAILY; DELAYED-RELEASE CAPSULES
  2. NEXIUM [Concomitant]
     Active Substance: ESOMEPRAZOLE MAGNESIUM

REACTIONS (1)
  - Dysphonia [Unknown]
